FAERS Safety Report 10177056 (Version 2)
Quarter: 2014Q3

REPORT INFORMATION
  Report Type: Spontaneous
  Country: US (occurrence: None)
  Receive Date: 20140514
  Receipt Date: 20140916
  Transmission Date: 20150326
  Serious: Yes (Hospitalization)
  Sender: FDA-Public Use
  Company Number: 2014P1003701

PATIENT
  Age: 67 Year
  Sex: Male
  Weight: 145.1 kg

DRUGS (3)
  1. XARETLTO [Concomitant]
  2. COLLAGENASE SANTYL [Suspect]
     Active Substance: COLLAGENASE CLOSTRIDIUM HISTOLYTICUM
     Indication: WOUND
     Route: 061
     Dates: start: 20131226
  3. COLLAGENASE OINTMENT [Suspect]
     Active Substance: COLLAGENASE CLOSTRIDIUM HISTOLYTICUM
     Indication: PRODUCT USED FOR UNKNOWN INDICATION

REACTIONS (7)
  - Wrong technique in drug usage process [None]
  - Skin disorder [None]
  - Intentional product misuse [None]
  - Sensory disturbance [None]
  - Bedridden [None]
  - Mental disorder [None]
  - Self-medication [None]
